FAERS Safety Report 5362733-2 (Version None)
Quarter: 2007Q2

REPORT INFORMATION
  Report Type: 
  Country: None (occurrence: None)
  Receive Date: 20070619
  Receipt Date: 20070604
  Transmission Date: 20071010
  Serious: Yes (Hospitalization)
  Sender: FDA-Public Use
  Company Number: DE-GENENTECH-242422

PATIENT
  Sex: Female
  Weight: 84 kg

DRUGS (1)
  1. AVASTIN [Suspect]
     Indication: COLORECTAL CANCER METASTATIC
     Dosage: 400 MG, QD
     Route: 042
     Dates: start: 20060415

REACTIONS (2)
  - GASTROINTESTINAL FISTULA [None]
  - LIVER ABSCESS [None]
